FAERS Safety Report 8548543-3 (Version None)
Quarter: 2012Q3

REPORT INFORMATION
  Report Type: 
  Country: None (occurrence: None)
  Receive Date: 20120730
  Receipt Date: 20120718
  Transmission Date: 20120928
  Serious: Yes (Hospitalization, Other)
  Sender: FDA-Public Use
  Company Number: US-BAYER-2012-036864

PATIENT
  Age: 46 Year
  Sex: Female
  Weight: 73 kg

DRUGS (5)
  1. YASMIN [Suspect]
     Indication: DYSMENORRHOEA
     Dosage: UNK
     Dates: start: 20020101, end: 20080502
  2. YAZ [Suspect]
     Indication: MENSTRUATION IRREGULAR
     Dosage: UNK
     Dates: start: 20020101, end: 20080502
  3. YASMIN [Suspect]
     Indication: MENSTRUATION IRREGULAR
  4. MECLOFENAMATE SODIUM [Concomitant]
     Indication: DYSMENORRHOEA
     Dosage: UNK
     Dates: start: 20080509
  5. YASMIN [Suspect]
     Indication: CONTRACEPTION

REACTIONS (7)
  - DEEP VEIN THROMBOSIS [None]
  - ANXIETY [None]
  - GENERAL PHYSICAL HEALTH DETERIORATION [None]
  - INJURY [None]
  - HYSTERECTOMY [None]
  - PAIN [None]
  - EMOTIONAL DISTRESS [None]
